FAERS Safety Report 9344801 (Version 1)
Quarter: 2013Q2

REPORT INFORMATION
  Report Type: Spontaneous
  Country: DE (occurrence: DE)
  Receive Date: 20130612
  Receipt Date: 20130612
  Transmission Date: 20140414
  Serious: Yes (Life-Threatening, Hospitalization, Congenital Anomaly)
  Sender: FDA-Public Use
  Company Number: DE-TEVA-409779GER

PATIENT
  Age: 0 Year
  Sex: Female

DRUGS (1)
  1. VALPROINS?URE [Suspect]
     Route: 064

REACTIONS (6)
  - Transposition of the great vessels [Recovered/Resolved]
  - Coarctation of the aorta [Unknown]
  - Congenital pulmonary valve disorder [Unknown]
  - Atrial septal defect [Unknown]
  - Congenital muscle absence [Not Recovered/Not Resolved]
  - Maternal drugs affecting foetus [None]
